FAERS Safety Report 21558071 (Version 3)
Quarter: 2022Q4

REPORT INFORMATION
  Report Type: Report from Study
  Country: NL (occurrence: NL)
  Receive Date: 20221107
  Receipt Date: 20221212
  Transmission Date: 20230113
  Serious: Yes (Hospitalization)
  Sender: FDA-Public Use
  Company Number: NL-BAYER-2022A152879

PATIENT
  Age: 75 Year
  Sex: Female
  Weight: 88 kg

DRUGS (4)
  1. RIVAROXABAN [Suspect]
     Active Substance: RIVAROXABAN
     Indication: Chronic coronary syndrome
     Dosage: 2.5 MG, BID
     Route: 048
     Dates: end: 20221103
  2. RIVAROXABAN [Suspect]
     Active Substance: RIVAROXABAN
     Indication: Chronic coronary syndrome
     Dosage: UNK
     Route: 048
  3. ASPIRIN [Suspect]
     Active Substance: ASPIRIN
     Indication: Chronic coronary syndrome
     Dosage: 80 MG, QD
     Route: 065
  4. HYDROCHLOROTHIAZIDE [Concomitant]
     Active Substance: HYDROCHLOROTHIAZIDE
     Dosage: UNK

REACTIONS (5)
  - Anaemia macrocytic [Recovered/Resolved]
  - Small intestinal haemorrhage [Recovered/Resolved]
  - Vitamin B12 decreased [Recovered/Resolved]
  - Urinary tract infection [Recovered/Resolved]
  - Hypokalaemia [Recovered/Resolved]

NARRATIVE: CASE EVENT DATE: 20220103
